FAERS Safety Report 6661301-X (Version None)
Quarter: 2010Q1

REPORT INFORMATION
  Report Type: 
  Country: None (occurrence: None)
  Receive Date: 20100331
  Receipt Date: 20100318
  Transmission Date: 20100710
  Serious: Yes (Hospitalization, Other)
  Sender: FDA-Public Use
  Company Number: BR-MEDIMMUNE-MEDI-0010854

PATIENT
  Sex: Female
  Weight: 7.1 kg

DRUGS (1)
  1. SYNAGIS [Suspect]
     Dates: start: 20090727, end: 20090727

REACTIONS (3)
  - BRONCHITIS [None]
  - BRONCHOPNEUMONIA [None]
  - PNEUMONIA [None]
